FAERS Safety Report 6075805 (Version 14)
Quarter: 2013Q3

REPORT INFORMATION
  Report Type: Spontaneous
  Country: US (occurrence: US)
  Receive Date: 20060703
  Receipt Date: 20130802
  Transmission Date: 20140515
  Serious: Yes (Hospitalization, Other)
  Sender: FDA-Public Use
  Company Number: PHEH2006US08086

PATIENT
  Age: 46 Year
  Sex: Female
  Weight: 58.2 kg

DRUGS (29)
  1. ZOMETA [Suspect]
     Indication: METASTASES TO BONE
     Dosage: 4 MG, MONTHLY
     Route: 042
     Dates: start: 20031002
  2. ZOMETA [Suspect]
     Indication: BREAST CANCER
     Dosage: 4 MG, UNK
     Route: 041
     Dates: start: 20090623
  3. PERCOCET [Concomitant]
  4. TYLENOL WITH CODEINE [Concomitant]
  5. XELODA [Concomitant]
     Dates: start: 20070413
  6. NEULASTA [Concomitant]
  7. METHOTREXATE [Concomitant]
  8. FLUOROURACIL [Concomitant]
  9. CYCLOPHOSPHAMIDE [Concomitant]
  10. AVASTIN [Concomitant]
  11. FEMARA [Concomitant]
  12. LETROZOLE [Concomitant]
  13. PACLITAXEL [Concomitant]
  14. DOCETAXEL [Concomitant]
  15. BEVACIZUMAB [Concomitant]
  16. NAVELBINE ^ASTA MEDICA^ [Concomitant]
  17. GEMCITABINE [Concomitant]
  18. CAPECITABINE [Concomitant]
  19. DOXIL [Concomitant]
     Route: 041
  20. OXALIPLATIN [Concomitant]
     Indication: BREAST CANCER
  21. FAMOTIDINE [Concomitant]
     Route: 048
  22. BENADRYL ^PFIZER WARNER-LAMBERT^ [Concomitant]
     Route: 048
  23. DEXAMETHASONE [Concomitant]
  24. DIPHENHYDRAMINE [Concomitant]
  25. IMITREX ^CERENEX^ [Concomitant]
  26. DISULFIRAM [Concomitant]
  27. DOXORUBICIN [Concomitant]
     Dosage: 40 MG/M2, UNK
     Dates: start: 20090527
  28. LYRICA [Concomitant]
     Dosage: 75 MG, BID
     Route: 048
  29. XANAX [Concomitant]
     Route: 048

REACTIONS (76)
  - Nephrolithiasis [Unknown]
  - Axillary mass [Unknown]
  - Nodule [Unknown]
  - Osteonecrosis of jaw [Not Recovered/Not Resolved]
  - Alveolar osteitis [Unknown]
  - Mucosal inflammation [Unknown]
  - Pain in jaw [Unknown]
  - Wound [Unknown]
  - Infection [Recovering/Resolving]
  - Neoplasm progression [Unknown]
  - Malignant neoplasm progression [Unknown]
  - Metastases to liver [Not Recovered/Not Resolved]
  - Metastases to spine [Unknown]
  - Metastases to bone [Not Recovered/Not Resolved]
  - Bone pain [Recovering/Resolving]
  - Chest pain [Unknown]
  - Back pain [Unknown]
  - Metabolic disorder [Unknown]
  - Metastases to lymph nodes [Unknown]
  - Tumour marker increased [Unknown]
  - Cough [Unknown]
  - Bone lesion [Unknown]
  - Impaired healing [Unknown]
  - Arthralgia [Unknown]
  - Hepatic pain [Recovering/Resolving]
  - Intervertebral disc protrusion [Unknown]
  - Back injury [Unknown]
  - Hepatic steatosis [Unknown]
  - Hypertension [Unknown]
  - Lung disorder [Unknown]
  - Pulmonary mass [Unknown]
  - Neutropenia [Unknown]
  - Metastases to lung [Unknown]
  - Pneumonia [Unknown]
  - Pulmonary fibrosis [Unknown]
  - Intervertebral disc degeneration [Unknown]
  - Intervertebral disc space narrowing [Unknown]
  - Osteoarthritis [Unknown]
  - Musculoskeletal chest pain [Unknown]
  - Diarrhoea [Recovering/Resolving]
  - Fatigue [Unknown]
  - Dyspnoea exertional [Unknown]
  - Erythema [Unknown]
  - Heart rate increased [Unknown]
  - Feeling abnormal [Unknown]
  - Pain in extremity [Unknown]
  - Lacrimation increased [Unknown]
  - Paraesthesia oral [Unknown]
  - Asthenia [Unknown]
  - Muscle spasms [Unknown]
  - Chills [Unknown]
  - Peripheral coldness [Unknown]
  - Oropharyngeal pain [Not Recovered/Not Resolved]
  - Pharyngeal oedema [Not Recovered/Not Resolved]
  - Musculoskeletal discomfort [Unknown]
  - Decreased appetite [Unknown]
  - Neuropathy peripheral [Unknown]
  - Vaginal haemorrhage [Unknown]
  - Nausea [Unknown]
  - Aphagia [Unknown]
  - Tendonitis [Unknown]
  - Tenosynovitis [Unknown]
  - Nail dystrophy [Unknown]
  - Anaemia [Unknown]
  - Osteochondrosis [Unknown]
  - Ankle fracture [Unknown]
  - Hyperuricaemia [Unknown]
  - Ascites [Unknown]
  - Hypercalcaemia [Unknown]
  - Epistaxis [Unknown]
  - Staphylococcal skin infection [Unknown]
  - Herpes zoster [Unknown]
  - Haematuria [Recovered/Resolved]
  - Visual impairment [Unknown]
  - Retinal detachment [Unknown]
  - Pulmonary calcification [Unknown]
